FAERS Safety Report 11692727 (Version 2)
Quarter: 2015Q4

REPORT INFORMATION
  Report Type: Spontaneous
  Country: JP (occurrence: JP)
  Receive Date: 20151103
  Receipt Date: 20151125
  Transmission Date: 20160304
  Serious: Yes (Hospitalization)
  Sender: FDA-Public Use
  Company Number: JP-009507513-1511JPN000008

PATIENT
  Age: 73 Year
  Sex: Male

DRUGS (3)
  1. MAGNESIUM OXIDE. [Suspect]
     Active Substance: MAGNESIUM OXIDE
     Dosage: DAILY DOSE UNKNOWN
     Route: 048
  2. MENESIT TABLETS - 100 [Suspect]
     Active Substance: CARBIDOPA\LEVODOPA
     Dosage: DAILY DOSE UNKNOWN
     Route: 048
     Dates: end: 201510
  3. MENESIT TABLETS - 100 [Suspect]
     Active Substance: CARBIDOPA\LEVODOPA
     Dosage: DAILY DOSE UNKNOWN
     Route: 048
     Dates: start: 20151027

REACTIONS (4)
  - Fall [Unknown]
  - Contusion [Unknown]
  - Sputum discoloured [Unknown]
  - Epistaxis [Unknown]

NARRATIVE: CASE EVENT DATE: 201510
